FAERS Safety Report 7547582-9 (Version None)
Quarter: 2011Q2

REPORT INFORMATION
  Report Type: 
  Country: None (occurrence: None)
  Receive Date: 20110614
  Receipt Date: 20110602
  Transmission Date: 20111010
  Serious: Yes (Hospitalization)
  Sender: FDA-Public Use
  Company Number: PHHY2011TR49542

PATIENT
  Sex: Female
  Weight: 56 kg

DRUGS (8)
  1. EVEROLIMUS [Suspect]
     Dosage: 1 MG, BID
     Dates: start: 20110323
  2. NEORAL [Concomitant]
     Dosage: 200+200
     Dates: start: 20101220, end: 20110107
  3. EVEROLIMUS [Suspect]
     Dosage: 0.75 MG, BID
     Dates: start: 20110107, end: 20110323
  4. NEORAL [Concomitant]
     Dosage: 125 + 125
     Dates: start: 20101214, end: 20101220
  5. NEORAL [Concomitant]
     Dosage: 100+100
     Dates: start: 20110107, end: 20110507
  6. NEORAL [Concomitant]
     Dosage: 200+200
     Dates: start: 20110508, end: 20110509
  7. NEORAL [Concomitant]
     Dosage: 25+25
     Dates: start: 20110511, end: 20110526
  8. NEORAL [Concomitant]
     Dosage: 50+50
     Dates: start: 20110526

REACTIONS (1)
  - TOXICITY TO VARIOUS AGENTS [None]
